FAERS Safety Report 10621494 (Version 1)
Quarter: 2014Q4

REPORT INFORMATION
  Report Type: Spontaneous
  Country: US (occurrence: None)
  Receive Date: 20141128
  Receipt Date: 20141128
  Transmission Date: 20150529
  Serious: Yes (Other)
  Sender: FDA-Public Use
  Company Number: 2014-US-015277

PATIENT
  Sex: Female
  Weight: 91.4 kg

DRUGS (5)
  1. XYREM [Suspect]
     Active Substance: SODIUM OXYBATE
     Indication: NARCOLEPSY
     Route: 048
     Dates: start: 200710
  2. PROVIGIL [Suspect]
     Active Substance: MODAFINIL
  3. CELEBREX [Concomitant]
     Active Substance: CELECOXIB
  4. ALBUTEROL (SALBUTAMOL) [Concomitant]
     Active Substance: ALBUTEROL
  5. LYRICA [Concomitant]
     Active Substance: PREGABALIN

REACTIONS (11)
  - Migraine [None]
  - Restless legs syndrome [None]
  - Euphoric mood [None]
  - Asthma [None]
  - Condition aggravated [None]
  - Iron deficiency [None]
  - Chills [None]
  - Sleep apnoea syndrome [None]
  - Obesity [None]
  - Seizure [None]
  - Hypertension [None]

NARRATIVE: CASE EVENT DATE: 2009
